FAERS Safety Report 5353567-3 (Version None)
Quarter: 2007Q2

REPORT INFORMATION
  Report Type: 
  Country: None (occurrence: None)
  Receive Date: 20070608
  Receipt Date: 20070608
  Transmission Date: 20071010
  Serious: Yes (Hospitalization)
  Sender: FDA-Public Use
  Company Number: None

PATIENT
  Sex: Female
  Weight: 62 kg

DRUGS (2)
  1. FLUOROURACIL [Suspect]
     Dosage: 3550 MG
  2. LEUCOVORIN CALCIUM [Suspect]
     Dosage: 165 MG

REACTIONS (15)
  - ABDOMINAL PAIN [None]
  - ACUTE RESPIRATORY FAILURE [None]
  - CARDIO-RESPIRATORY ARREST [None]
  - COMPUTERISED TOMOGRAM ABNORMAL [None]
  - DIARRHOEA [None]
  - ELECTROLYTE IMBALANCE [None]
  - GASTROINTESTINAL NECROSIS [None]
  - INTESTINAL ISCHAEMIA [None]
  - INTESTINAL MUCOSAL HYPERTROPHY [None]
  - LYMPHADENOPATHY [None]
  - NAUSEA [None]
  - PNEUMATOSIS [None]
  - PORTAL VENOUS GAS [None]
  - SEPSIS [None]
  - VOMITING [None]
